FAERS Safety Report 8956995 (Version 1)
Quarter: 2012Q4

REPORT INFORMATION
  Report Type: 
  Country: FR (occurrence: FR)
  Receive Date: 20121210
  Receipt Date: 20121210
  Transmission Date: 20130627
  Serious: Yes (Death, Other)
  Sender: FDA-Public Use
  Company Number: FR-ROCHE-1165732

PATIENT

DRUGS (2)
  1. RITUXIMAB [Suspect]
     Indication: TRANSPLANT REJECTION
     Dosage: 2 doses
     Route: 065
  2. IMMUNOGLOBULIN [Suspect]
     Indication: TRANSPLANT REJECTION
     Dosage: 1 g/kg
     Route: 042

REACTIONS (3)
  - Death [Fatal]
  - Neoplasm [Unknown]
  - Hepatocellular injury [Unknown]
